FAERS Safety Report 4491140-X (Version None)
Quarter: 2004Q3

REPORT INFORMATION
  Report Type: 
  Country: None (occurrence: None)
  Receive Date: 20040927
  Receipt Date: 20040730
  Transmission Date: 20050211
  Serious: No
  Sender: FDA-Public Use
  Company Number: USA040874230

PATIENT
  Age: 39 Year
  Sex: Female
  Weight: 66 kg

DRUGS (4)
  1. STRATTERA [Suspect]
     Indication: ATTENTION DEFICIT/HYPERACTIVITY DISORDER
     Dosage: 18 MG DAY
     Dates: start: 20040729
  2. PAXIL CR [Concomitant]
  3. ACTONEL (RISENDRONATE SODIUM) [Concomitant]
  4. NEXIUM [Concomitant]

REACTIONS (5)
  - DIZZINESS [None]
  - FATIGUE [None]
  - FEELING JITTERY [None]
  - NERVOUSNESS [None]
  - TREMOR [None]
